FAERS Safety Report 21215974 (Version 2)
Quarter: 2023Q1

REPORT INFORMATION
  Report Type: Spontaneous
  Country: DE (occurrence: DE)
  Receive Date: 20220816
  Receipt Date: 20230110
  Transmission Date: 20230417
  Serious: Yes (Other)
  Sender: FDA-Public Use
  Company Number: DE-NOVARTISPH-NVSC2022DE184585

PATIENT
  Age: 44 Year
  Sex: Female

DRUGS (1)
  1. GILENYA [Suspect]
     Active Substance: FINGOLIMOD HYDROCHLORIDE
     Indication: Multiple sclerosis
     Dosage: 0.5 MG, QD
     Route: 065
     Dates: start: 2013

REACTIONS (13)
  - Myocardial infarction [Unknown]
  - Prinzmetal angina [Unknown]
  - Multiple sclerosis relapse [Unknown]
  - Lymphopenia [Recovering/Resolving]
  - Cognitive disorder [Unknown]
  - Memory impairment [Unknown]
  - Dermatitis [Unknown]
  - Hypoaesthesia [Unknown]
  - Gastrointestinal disorder [Unknown]
  - Cardiac disorder [Unknown]
  - Coronavirus infection [Unknown]
  - Fatigue [Unknown]
  - Rebound effect [Unknown]

NARRATIVE: CASE EVENT DATE: 20160101
